FAERS Safety Report 4745735-6 (Version None)
Quarter: 2005Q3

REPORT INFORMATION
  Report Type: 
  Country: None (occurrence: None)
  Receive Date: 20050811
  Receipt Date: 20031009
  Transmission Date: 20060218
  Serious: Yes (Other)
  Sender: FDA-Public Use
  Company Number: SGB1-2003-00879

PATIENT
  Sex: 0

DRUGS (1)
  1. MIDODRINE (MIDODRINE) TABLET [Suspect]

REACTIONS (1)
  - EPILEPSY [None]
